FAERS Safety Report 11199021 (Version 1)
Quarter: 2015Q2

REPORT INFORMATION
  Report Type: Spontaneous
  Country: US (occurrence: US)
  Receive Date: 20150618
  Receipt Date: 20150618
  Transmission Date: 20150821
  Serious: No
  Sender: FDA-Public Use
  Company Number: US-TEVA-450375USA

PATIENT
  Age: 83 Year
  Sex: Female

DRUGS (2)
  1. CIPROFLOXACIN. [Suspect]
     Active Substance: CIPROFLOXACIN
     Indication: BACTERIAL INFECTION
     Dosage: 1000 MILLIGRAM DAILY;
     Route: 065
  2. UNSPECIFIED ANTIBIOTIC [Concomitant]
     Active Substance: UNSPECIFIED INGREDIENT

REACTIONS (12)
  - Tendon pain [Unknown]
  - Arthralgia [Unknown]
  - Nerve injury [Unknown]
  - Tendon disorder [Unknown]
  - Swelling [Unknown]
  - Nausea [Unknown]
  - Ear pain [Unknown]
  - Pain in extremity [Unknown]
  - Joint swelling [Not Recovered/Not Resolved]
  - Peripheral swelling [Unknown]
  - Jaw disorder [Unknown]
  - Neck pain [Unknown]

NARRATIVE: CASE EVENT DATE: 201310
